FAERS Safety Report 13402624 (Version 1)
Quarter: 2017Q2

REPORT INFORMATION
  Report Type: Report from Study
  Country: US (occurrence: US)
  Receive Date: 20170404
  Receipt Date: 20170404
  Transmission Date: 20170830
  Serious: Yes (Other)
  Sender: FDA-Public Use
  Company Number: US-ACTELION-A-US2017-151854

PATIENT
  Age: 58 Year
  Sex: Female
  Weight: 64.85 kg

DRUGS (3)
  1. LASIX [Suspect]
     Active Substance: FUROSEMIDE
     Indication: PRODUCT USED FOR UNKNOWN INDICATION
     Route: 065
  2. OPSUMIT [Suspect]
     Active Substance: MACITENTAN
     Indication: PULMONARY HYPERTENSION
     Dosage: 10 MG, QD
     Route: 048
  3. ADCIRCA [Concomitant]
     Active Substance: TADALAFIL

REACTIONS (8)
  - Memory impairment [Unknown]
  - Blindness [Unknown]
  - Hypothyroidism [Unknown]
  - Liver disorder [Unknown]
  - Macular degeneration [Unknown]
  - Pollakiuria [Unknown]
  - Ammonia increased [Unknown]
  - Dry mouth [Unknown]
